FAERS Safety Report 10160209 (Version 2)
Quarter: 2014Q3

REPORT INFORMATION
  Report Type: Spontaneous
  Country: US (occurrence: US)
  Receive Date: 20140508
  Receipt Date: 20140923
  Transmission Date: 20150326
  Serious: Yes (Death, Hospitalization)
  Sender: FDA-Public Use
  Company Number: US-BAYER-2014-065655

PATIENT
  Age: 23 Year
  Sex: Female
  Weight: 119.27 kg

DRUGS (6)
  1. OCELLA [Suspect]
     Active Substance: DROSPIRENONE\ETHINYL ESTRADIOL
     Dosage: UNK
     Dates: start: 201103, end: 201204
  2. MANNITOL. [Concomitant]
     Active Substance: MANNITOL
     Route: 042
  3. ADVAIR DISKUS [Concomitant]
     Active Substance: FLUTICASONE PROPIONATE\SALMETEROL XINAFOATE
  4. ALBUTEIN [ALBUMEN] [Concomitant]
  5. DECADRAN [Concomitant]
     Route: 042
  6. BACTRIM [Concomitant]
     Active Substance: SULFAMETHOXAZOLE\TRIMETHOPRIM

REACTIONS (9)
  - Encephalopathy [Fatal]
  - Cerebrovascular accident [Fatal]
  - Cerebral thrombosis [None]
  - Injury [Fatal]
  - Pneumonia [Fatal]
  - Pain [Fatal]
  - Cerebral infarction [Fatal]
  - Cerebrovascular accident [None]
  - Pain [None]

NARRATIVE: CASE EVENT DATE: 20110606
